FAERS Safety Report 4388805-7 (Version None)
Quarter: 2004Q2

REPORT INFORMATION
  Report Type: 
  Country: None (occurrence: None)
  Receive Date: 20040624
  Receipt Date: 20040618
  Transmission Date: 20050107
  Serious: Yes (Hospitalization)
  Sender: FDA-Public Use
  Company Number: 200411950GDS

PATIENT
  Age: 63 Year
  Sex: Male

DRUGS (9)
  1. ASPIRIN [Suspect]
     Indication: PROPHYLAXIS
     Dosage: 100 MG, TOTAL DAILY, ORAL
     Route: 048
     Dates: end: 20040528
  2. FLOX-EX (FLUVOXAMINE) [Suspect]
     Indication: DEPRESSION
     Dosage: ORAL
     Route: 048
  3. MARCUMAR [Suspect]
     Indication: PROPHYLAXIS
     Dosage: PRN, ORAL
     Route: 048
     Dates: end: 20040528
  4. VOLTAREN [Suspect]
     Dosage: ORAL
  5. PLAVIX [Suspect]
     Indication: PROPHYLAXIS
     Dosage: 75 MG, TOTAL DAILY, ORAL
     Route: 048
     Dates: end: 20040528
  6. CORVATON [Concomitant]
  7. PRAVASTATIN SODIUM [Concomitant]
  8. TORSEMIDE [Concomitant]
  9. RENITEN [Concomitant]

REACTIONS (15)
  - ANAEMIA [None]
  - ANOREXIA [None]
  - CHEST PAIN [None]
  - COAGULATION TIME PROLONGED [None]
  - DRUG INTERACTION [None]
  - HYPOTENSION [None]
  - INTERNATIONAL NORMALISED RATIO ABNORMAL [None]
  - LOSS OF CONSCIOUSNESS [None]
  - PROTHROMBIN TIME PROLONGED [None]
  - SCIATICA [None]
  - SYNCOPE [None]
  - TACHYCARDIA [None]
  - UPPER GASTROINTESTINAL HAEMORRHAGE [None]
  - VERTIGO [None]
  - VOMITING [None]
